FAERS Safety Report 13622081 (Version 1)
Quarter: 2017Q2

REPORT INFORMATION
  Report Type: Spontaneous
  Country: US (occurrence: US)
  Receive Date: 20170607
  Receipt Date: 20170607
  Transmission Date: 20170830
  Serious: No
  Sender: FDA-Public Use
  Company Number: US-ROCHE-1874665

PATIENT
  Sex: Male

DRUGS (3)
  1. GEMCITABINE [Concomitant]
     Active Substance: GEMCITABINE\GEMCITABINE HYDROCHLORIDE
     Dosage: THERAPY INFUSIONS ON THE 4TH AND 11TH
     Route: 065
  2. XELODA [Suspect]
     Active Substance: CAPECITABINE
     Indication: PANCREATIC CARCINOMA STAGE IV
     Dosage: FOR 2 WEEKS ON AND 1 WEEK OFF
     Route: 048
  3. DOCETAXEL. [Concomitant]
     Active Substance: DOCETAXEL
     Dosage: THERAPY INFUSIONS ON THE 4TH AND 11TH
     Route: 065

REACTIONS (1)
  - Nausea [Unknown]
